FAERS Safety Report 16620740 (Version 2)
Quarter: 2019Q3

REPORT INFORMATION
  Report Type: Report from Study
  Country: ES (occurrence: ES)
  Receive Date: 20190723
  Receipt Date: 20190724
  Transmission Date: 20191004
  Serious: Yes (Life-Threatening, Hospitalization)
  Sender: FDA-Public Use
  Company Number: ES-EISAI MEDICAL RESEARCH-EC-2019-059370

PATIENT
  Age: 56 Year
  Sex: Male
  Weight: 68.8 kg

DRUGS (2)
  1. EVEROLIMUS. [Suspect]
     Active Substance: EVEROLIMUS
     Indication: RENAL CELL CARCINOMA
     Route: 048
     Dates: start: 20180313, end: 20190716
  2. LENVATINIB [Suspect]
     Active Substance: LENVATINIB
     Indication: RENAL CELL CARCINOMA
     Route: 048
     Dates: start: 20180313, end: 20190716

REACTIONS (2)
  - Pancreatitis [Not Recovered/Not Resolved]
  - Splenic vein thrombosis [Not Recovered/Not Resolved]

NARRATIVE: CASE EVENT DATE: 20190717
